FAERS Safety Report 12409013 (Version 2)
Quarter: 2016Q3

REPORT INFORMATION
  Report Type: Spontaneous
  Country: FR (occurrence: FR)
  Receive Date: 20160526
  Receipt Date: 20160815
  Transmission Date: 20161109
  Serious: Yes (Other)
  Sender: FDA-Public Use
  Company Number: FR-ASTRAZENECA-2016SE54257

PATIENT
  Age: 703 Month
  Sex: Female
  Weight: 70 kg

DRUGS (13)
  1. IMETH [Suspect]
     Active Substance: METHOTREXATE SODIUM
     Indication: RHEUMATOID ARTHRITIS
     Dosage: SUPPRESSED DOSE FOR ONE WEEK
     Route: 065
  2. SURGESTONE [Concomitant]
     Active Substance: PROMEGESTONE
  3. ONGLYZA [Concomitant]
     Active Substance: SAXAGLIPTIN HYDROCHLORIDE
     Indication: TYPE 2 DIABETES MELLITUS
     Dosage: 1 DF AT NOON AND AT NIGHT
     Dates: end: 20160304
  4. TAHOR [Concomitant]
     Active Substance: ATORVASTATIN CALCIUM
  5. MUPIDERM [Concomitant]
     Active Substance: MUPIROCIN
     Indication: WOUND
  6. DIAMICRON [Concomitant]
     Active Substance: GLICLAZIDE
     Indication: TYPE 2 DIABETES MELLITUS
     Dates: end: 20160330
  7. SEROPLEX [Concomitant]
     Active Substance: ESCITALOPRAM OXALATE
  8. TAREG [Concomitant]
     Active Substance: VALSARTAN
  9. LEVOTHYROX [Concomitant]
     Active Substance: LEVOTHYROXINE
  10. SPECIAFOLDINE [Concomitant]
     Active Substance: FOLIC ACID
  11. BYDUREON [Suspect]
     Active Substance: EXENATIDE
     Indication: TYPE 2 DIABETES MELLITUS
     Route: 065
     Dates: start: 20160218, end: 20160407
  12. IMETH [Suspect]
     Active Substance: METHOTREXATE SODIUM
     Indication: RHEUMATOID ARTHRITIS
     Dosage: 12.5 MG, EVERY MONDAY AT NIGHT
     Route: 065
     Dates: start: 2010
  13. DIAMICRON [Concomitant]
     Active Substance: GLICLAZIDE
     Indication: TYPE 2 DIABETES MELLITUS
     Dates: end: 20160330

REACTIONS (8)
  - Gamma-glutamyltransferase increased [Unknown]
  - Swelling [Recovered/Resolved]
  - Erythema [Recovered/Resolved]
  - Red blood cell sedimentation rate increased [Unknown]
  - Weight decreased [Unknown]
  - Abdominal pain [Unknown]
  - Pruritus [Recovered/Resolved]
  - Off label use [Not Recovered/Not Resolved]

NARRATIVE: CASE EVENT DATE: 201604
